FAERS Safety Report 6622838-2 (Version None)
Quarter: 2010Q1

REPORT INFORMATION
  Report Type: 
  Country: None (occurrence: None)
  Receive Date: 20100310
  Receipt Date: 20091219
  Transmission Date: 20100710
  Serious: No
  Sender: FDA-Public Use
  Company Number: US-BIOGENIDEC-2009BI041947

PATIENT
  Sex: Male

DRUGS (2)
  1. AVONEX [Suspect]
     Indication: MULTIPLE SCLEROSIS
     Dates: start: 20020614, end: 20071130
  2. AVONEX [Suspect]
     Dates: start: 20091205

REACTIONS (2)
  - BALANCE DISORDER [None]
  - PAIN IN EXTREMITY [None]
